FAERS Safety Report 13259797 (Version 1)
Quarter: 2017Q1

REPORT INFORMATION
  Report Type: Report from Study
  Country: CA (occurrence: CA)
  Receive Date: 20170222
  Receipt Date: 20170222
  Transmission Date: 20170428
  Serious: Yes (Death, Other)
  Sender: FDA-Public Use
  Company Number: PHHY2015CA119809

PATIENT
  Age: 72 Year
  Sex: Female

DRUGS (6)
  1. CLAVULIN [Concomitant]
     Active Substance: AMOXICILLIN\CLAVULANIC ACID
     Indication: ABDOMINAL DISCOMFORT
     Route: 065
  2. CLAVULIN [Concomitant]
     Active Substance: AMOXICILLIN\CLAVULANIC ACID
     Indication: NAUSEA
  3. ERYTHROMYCIN. [Concomitant]
     Active Substance: ERYTHROMYCIN
     Indication: RASH
     Route: 065
  4. SANDOSTATIN LAR DEPOT [Suspect]
     Active Substance: OCTREOTIDE ACETATE
     Indication: NEUROENDOCRINE TUMOUR
     Dosage: 30 MG, QMO (EVERY 4 WEEKS)
     Route: 030
     Dates: start: 20150827, end: 20160405
  5. PENICILLIN [Concomitant]
     Active Substance: PENICILLIN
     Indication: PRODUCT USED FOR UNKNOWN INDICATION
     Route: 065
  6. SANDOSTATIN LAR DEPOT [Suspect]
     Active Substance: OCTREOTIDE ACETATE
     Dosage: 60 MG, QMO (EVERY 4 WEEKS)
     Route: 030
     Dates: start: 20160506

REACTIONS (21)
  - Blood pressure diastolic decreased [Unknown]
  - Gait disturbance [Unknown]
  - Pain in extremity [Unknown]
  - Dizziness [Unknown]
  - Hypersensitivity [Unknown]
  - Weight decreased [Unknown]
  - Incorrect product storage [Unknown]
  - Malignant neoplasm progression [Unknown]
  - Arthralgia [Unknown]
  - Mastication disorder [Unknown]
  - Anxiety [Unknown]
  - Respiratory rate increased [Unknown]
  - Tenderness [Unknown]
  - Appetite disorder [Unknown]
  - Injection site discomfort [Unknown]
  - Death [Fatal]
  - Blood pressure systolic increased [Unknown]
  - Syringe issue [Unknown]
  - Cough [Recovering/Resolving]
  - Heart rate irregular [Unknown]
  - Proctalgia [Unknown]

NARRATIVE: CASE EVENT DATE: 20151218
